FAERS Safety Report 14185090 (Version 1)
Quarter: 2017Q4

REPORT INFORMATION
  Report Type: Report from Study
  Country: US (occurrence: US)
  Receive Date: 20171114
  Receipt Date: 20171114
  Transmission Date: 20180321
  Serious: Yes (Hospitalization, Other)
  Sender: FDA-Public Use
  Company Number: US-GILEAD-2017-0304575

PATIENT
  Age: 61 Year
  Sex: Male

DRUGS (7)
  1. AMBRISENTAN [Suspect]
     Active Substance: AMBRISENTAN
     Indication: PRODUCT USED FOR UNKNOWN INDICATION
     Dosage: 5 MG, QD
     Route: 065
  2. LASIX [Concomitant]
     Active Substance: FUROSEMIDE
  3. OXYCODONE [Concomitant]
     Active Substance: OXYCODONE
  4. MORPHINE SULFATE ANHYDROUS [Concomitant]
  5. JADENU [Concomitant]
     Active Substance: DEFERASIROX
  6. POTASSIUM [Concomitant]
     Active Substance: POTASSIUM
  7. FOLIC ACID. [Concomitant]
     Active Substance: FOLIC ACID

REACTIONS (1)
  - Limb operation [Unknown]
